FAERS Safety Report 4276054-2 (Version None)
Quarter: 2004Q1

REPORT INFORMATION
  Report Type: 
  Country: None (occurrence: None)
  Receive Date: 20040121
  Receipt Date: 20030715
  Transmission Date: 20041129
  Serious: No
  Sender: FDA-Public Use
  Company Number: US-GLAXOSMITHKLINE-A0417664A

PATIENT
  Age: 32 Year
  Sex: Female

DRUGS (2)
  1. VALTREX [Suspect]
     Dosage: 1G TWICE PER DAY
     Route: 048
     Dates: start: 20030703, end: 20030712
  2. UNKNOWN NONSTEROIDAL ANALGESIC [Concomitant]

REACTIONS (5)
  - CONJUNCTIVITIS [None]
  - EYE DISCHARGE [None]
  - EYE REDNESS [None]
  - MYALGIA [None]
  - OEDEMA PERIPHERAL [None]
